FAERS Safety Report 15659402 (Version 1)
Quarter: 2018Q4

REPORT INFORMATION
  Report Type: Spontaneous
  Country: FR (occurrence: FR)
  Receive Date: 20181127
  Receipt Date: 20181127
  Transmission Date: 20190205
  Serious: Yes (Hospitalization)
  Sender: FDA-Public Use
  Company Number: FR-SUN PHARMACEUTICAL INDUSTRIES LTD-2018RR-191950

PATIENT
  Age: 88 Year
  Sex: Female
  Weight: 46 kg

DRUGS (5)
  1. ZYMAD 80 000 UI, SOLUTION BUVABLE EN AMPOULE [Concomitant]
     Active Substance: CHOLECALCIFEROL
     Indication: OSTEOPOROSIS
     Dosage: 1 DOSAGE FORM, 3 MONTHLY
     Route: 048
  2. KARDEGIC [Concomitant]
     Active Substance: ASPIRIN DL-LYSINE
     Indication: CARDIOVASCULAR EVENT PROPHYLAXIS
     Dosage: 75 MILLIGRAM, QD
     Route: 048
  3. OLANZAPINE. [Suspect]
     Active Substance: OLANZAPINE
     Indication: AFFECTIVE DISORDER
     Dosage: 2.5 MILLIGRAM, QD
     Route: 048
     Dates: start: 20180108, end: 20180607
  4. SERTRALINE [Suspect]
     Active Substance: SERTRALINE HYDROCHLORIDE
     Indication: DEPRESSION
     Dosage: 50 MILLIGRAM, QD
     Route: 048
     Dates: start: 20180108, end: 20180607
  5. CARDENSIEL 1,25 MG, COMPRIME PELLICULE [Concomitant]
     Active Substance: BISOPROLOL FUMARATE
     Indication: HYPERTENSION
     Dosage: 1.25 MILLIGRAM, QD
     Route: 048

REACTIONS (1)
  - Seizure [Recovered/Resolved]

NARRATIVE: CASE EVENT DATE: 20180607
